FAERS Safety Report 16868799 (Version 2)
Quarter: 2019Q4

REPORT INFORMATION
  Report Type: Spontaneous
  Country: IT (occurrence: IT)
  Receive Date: 20190930
  Receipt Date: 20191104
  Transmission Date: 20200122
  Serious: Yes (Other)
  Sender: FDA-Public Use
  Company Number: IT-SA-2019SA268402

PATIENT
  Age: 27 Year
  Sex: Female

DRUGS (2)
  1. ACYCLOVIR [ACICLOVIR] [Concomitant]
     Active Substance: ACYCLOVIR
     Indication: HERPES SIMPLEX
  2. DUPIXENT [Suspect]
     Active Substance: DUPILUMAB
     Indication: DERMATITIS ATOPIC
     Dosage: UNK
     Route: 058
     Dates: start: 20190627

REACTIONS (5)
  - Molluscum contagiosum [Unknown]
  - Urticaria [Unknown]
  - Alopecia areata [Recovering/Resolving]
  - Drug ineffective [Unknown]
  - Asthenia [Unknown]
